FAERS Safety Report 19273277 (Version 1)
Quarter: 2021Q2

REPORT INFORMATION
  Report Type: Spontaneous
  Country: JP (occurrence: JP)
  Receive Date: 20210519
  Receipt Date: 20210519
  Transmission Date: 20210717
  Serious: Yes (Hospitalization)
  Sender: FDA-Public Use
  Company Number: JP-COEPTIS PHARMACEUTICALS, INC.-COE-2021-000049

PATIENT
  Age: 54 Year
  Sex: Female
  Weight: 77.5 kg

DRUGS (4)
  1. AMLODIPINE [Suspect]
     Active Substance: AMLODIPINE BESYLATE
     Indication: HYPERTENSION
     Route: 048
  2. OLMESARTAN [Suspect]
     Active Substance: OLMESARTAN
     Route: 048
  3. BROTIZOLAM [Concomitant]
     Active Substance: BROTIZOLAM
     Dosage: APPROXIMATELY 10 HRS BEFORE ARRIVAL
     Route: 048
  4. ETIZOLAM [Concomitant]
     Active Substance: ETIZOLAM
     Dosage: APPROXIMATELY 10 HRS BEFORE ARRIVAL
     Route: 048

REACTIONS (6)
  - Distributive shock [Recovered/Resolved]
  - Mental status changes [Recovered/Resolved]
  - Hypotension [Recovered/Resolved]
  - Overdose [Recovered/Resolved]
  - Suicide attempt [Recovered/Resolved]
  - Metabolic acidosis [Recovered/Resolved]
